FAERS Safety Report 5768029-9 (Version None)
Quarter: 2008Q2

REPORT INFORMATION
  Report Type: 
  Country: None (occurrence: None)
  Receive Date: 20080612
  Receipt Date: 20071219
  Transmission Date: 20081010
  Serious: No
  Sender: FDA-Public Use
  Company Number: US-ASTRAZENECA-2007UW28671

PATIENT
  Age: 69 Year
  Sex: Female
  Weight: 87.1 kg

DRUGS (5)
  1. FASLODEX [Suspect]
     Indication: BREAST CANCER
     Route: 030
     Dates: start: 20070815
  2. ZOMETA [Concomitant]
  3. LORAZEPAM [Concomitant]
  4. GAS RELIEF [Concomitant]
  5. STOOL SOFTENER [Concomitant]

REACTIONS (6)
  - ABDOMINAL DISTENSION [None]
  - CONSTIPATION [None]
  - DIARRHOEA [None]
  - DYSPNOEA [None]
  - FLATULENCE [None]
  - NAUSEA [None]
